FAERS Safety Report 5290329-X (Version None)
Quarter: 2007Q2

REPORT INFORMATION
  Report Type: 
  Country: None (occurrence: None)
  Receive Date: 20070409
  Receipt Date: 20070327
  Transmission Date: 20071010
  Serious: Yes (Other)
  Sender: FDA-Public Use
  Company Number: US-ELI_LILLY_AND_COMPANY-US200703006709

PATIENT
  Age: 62 Year
  Sex: Male

DRUGS (2)
  1. GEMZAR [Suspect]
     Indication: NEOPLASM MALIGNANT
     Dosage: 2160 MG, UNK
     Route: 042
     Dates: start: 20061226, end: 20070129
  2. CISPLATIN [Concomitant]
     Indication: NEOPLASM MALIGNANT
     Dosage: 150 MG, UNK
     Route: 042
     Dates: start: 20061226, end: 20070122

REACTIONS (1)
  - NECROSIS [None]
